FAERS Safety Report 16381241 (Version 1)
Quarter: 2019Q2

REPORT INFORMATION
  Report Type: Spontaneous
  Country: GB (occurrence: GB)
  Receive Date: 20190603
  Receipt Date: 20190603
  Transmission Date: 20190711
  Serious: Yes (Life-Threatening, Hospitalization, Disabling, Other)
  Sender: FDA-Public Use
  Company Number: GB-SUN PHARMACEUTICAL INDUSTRIES LTD-2019RR-209304

PATIENT
  Age: 43 Year
  Sex: Female
  Weight: 52 kg

DRUGS (1)
  1. CIPROFLOXACIN. [Suspect]
     Active Substance: CIPROFLOXACIN
     Indication: TYPHOID FEVER
     Dosage: WAS A HIGH DOSEAGE AT FIRST, THEN STEPPED DOWN AND THE TREATMENT EXTENDED. 7 WEEKS IN ALL. ()
     Route: 048
     Dates: start: 20140726, end: 20140811

REACTIONS (27)
  - Pneumonia klebsiella [Not Recovered/Not Resolved]
  - Depression [Unknown]
  - Derealisation [Unknown]
  - Tinnitus [Unknown]
  - Mania [Unknown]
  - Collagen disorder [Not Recovered/Not Resolved]
  - Malaise [Unknown]
  - Muscular weakness [Unknown]
  - Panic attack [Unknown]
  - Migraine with aura [Unknown]
  - Nervous system disorder [Not Recovered/Not Resolved]
  - Vein disorder [Unknown]
  - Serum serotonin decreased [Unknown]
  - Psychotic disorder [Not Recovered/Not Resolved]
  - Tooth loss [Unknown]
  - Hallucination [Not Recovered/Not Resolved]
  - Post-traumatic stress disorder [Unknown]
  - Anxiety [Unknown]
  - Alopecia [Not Recovered/Not Resolved]
  - Immune system disorder [Unknown]
  - Tremor [Not Recovered/Not Resolved]
  - Fatigue [Unknown]
  - Fibromyalgia [Not Recovered/Not Resolved]
  - Connective tissue disorder [Not Recovered/Not Resolved]
  - Delirium [Not Recovered/Not Resolved]
  - Dyspepsia [Unknown]
  - Neuropathy peripheral [Not Recovered/Not Resolved]

NARRATIVE: CASE EVENT DATE: 20140730
